FAERS Safety Report 5479244-6 (Version None)
Quarter: 2007Q4

REPORT INFORMATION
  Report Type: 
  Country: None (occurrence: None)
  Receive Date: 20071008
  Receipt Date: 20070926
  Transmission Date: 20080405
  Serious: Yes (Hospitalization, Disabling)
  Sender: FDA-Public Use
  Company Number: PHHO2007IE15885

PATIENT
  Age: 66 Year
  Sex: Female
  Weight: 76 kg

DRUGS (4)
  1. LETROZOLE [Suspect]
     Indication: BREAST CANCER
     Dosage: 2.5 MG, QD
     Route: 048
     Dates: start: 20070808, end: 20070924
  2. AMLODIPINE [Concomitant]
  3. DIOVAN [Concomitant]
  4. CARDURA [Concomitant]

REACTIONS (6)
  - ARTHROPOD STING [None]
  - DYSPHAGIA [None]
  - EYE SWELLING [None]
  - RASH [None]
  - RASH ERYTHEMATOUS [None]
  - RASH MACULO-PAPULAR [None]
